FAERS Safety Report 4883579-5 (Version None)
Quarter: 2006Q1

REPORT INFORMATION
  Report Type: 
  Country: None (occurrence: None)
  Receive Date: 20060118
  Receipt Date: 20051104
  Transmission Date: 20060701
  Serious: Yes (Other)
  Sender: FDA-Public Use
  Company Number: US-MERCK-0511USA00963

PATIENT
  Age: 49 Year
  Sex: Female
  Weight: 107 kg

DRUGS (1)
  1. VIOXX [Suspect]
     Route: 048

REACTIONS (6)
  - ANGINA PECTORIS [None]
  - CORONARY ARTERY DISEASE [None]
  - DYSLIPIDAEMIA [None]
  - HYPERSENSITIVITY [None]
  - MYOCARDIAL INFARCTION [None]
  - MYOCARDIAL ISCHAEMIA [None]
